FAERS Safety Report 7518867-7 (Version None)
Quarter: 2011Q2

REPORT INFORMATION
  Report Type: 
  Country: None (occurrence: None)
  Receive Date: 20110602
  Receipt Date: 20110528
  Transmission Date: 20111010
  Serious: Yes (Hospitalization, Other)
  Sender: FDA-Public Use
  Company Number: GB-BRISTOL-MYERS SQUIBB COMPANY-15721897

PATIENT
  Age: 63 Year
  Sex: Male

DRUGS (1)
  1. IPILIMUMAB [Suspect]
     Indication: MALIGNANT MELANOMA
     Dosage: CYCLE 1-15TH MAR,CYCLE 2 ON 5 APR,CYCLE 3- WAS DUE DUE 26
     Route: 042
     Dates: start: 20110315, end: 20110519

REACTIONS (2)
  - FATIGUE [None]
  - DEPRESSION [None]
